FAERS Safety Report 8408070-0 (Version None)
Quarter: 2012Q2

REPORT INFORMATION
  Report Type: 
  Country: None (occurrence: None)
  Receive Date: 20120601
  Receipt Date: 20120601
  Transmission Date: 20120825
  Serious: Yes (Hospitalization)
  Sender: FDA-Public Use
  Company Number: None

PATIENT
  Sex: Female
  Weight: 54.4316 kg

DRUGS (1)
  1. ACTONEL [Suspect]
     Indication: OSTEOPOROSIS PROPHYLAXIS
     Dosage: 150MG OR 70MG (NOT SURE) ONCE A MONTH ORAL
     Route: 048
     Dates: start: 20120215

REACTIONS (5)
  - DYSSTASIA [None]
  - DIZZINESS [None]
  - NAUSEA [None]
  - TREMOR [None]
  - FEELING COLD [None]
